FAERS Safety Report 23982267 (Version 1)
Quarter: 2024Q2

REPORT INFORMATION
  Report Type: Spontaneous
  Country: US (occurrence: None)
  Receive Date: 20240616
  Receipt Date: 20240616
  Transmission Date: 20240716
  Serious: No
  Sender: FDA-Public Use
  Company Number: None

PATIENT
  Age: 69 Year
  Sex: Female
  Weight: 68.4 kg

DRUGS (1)
  1. RECLAST [Suspect]
     Active Substance: ZOLEDRONIC ACID
     Dates: start: 20240301, end: 20240301

REACTIONS (10)
  - Abdominal pain upper [None]
  - Pyrexia [None]
  - Chills [None]
  - Pain [None]
  - Chest pain [None]
  - Arthralgia [None]
  - Joint stiffness [None]
  - Joint swelling [None]
  - Bone pain [None]
  - Headache [None]

NARRATIVE: CASE EVENT DATE: 20240301
